FAERS Safety Report 13820706 (Version 1)
Quarter: 2017Q3

REPORT INFORMATION
  Report Type: Spontaneous
  Country: AU (occurrence: AU)
  Receive Date: 20170801
  Receipt Date: 20170801
  Transmission Date: 20171127
  Serious: Yes (Other)
  Sender: FDA-Public Use
  Company Number: PHHY2017AU111311

PATIENT
  Age: 82 Year
  Sex: Male

DRUGS (1)
  1. TAMSULOSIN SANDOZ [Suspect]
     Active Substance: TAMSULOSIN
     Indication: PRODUCT USED FOR UNKNOWN INDICATION
     Dosage: 400 UG, UNK
     Route: 065

REACTIONS (4)
  - Genital swelling [Unknown]
  - Drug ineffective [Unknown]
  - Diarrhoea [Unknown]
  - Erection increased [Unknown]
